FAERS Safety Report 3700518 (Version 2)
Quarter: 2013Q1

REPORT INFORMATION
  Report Type: Spontaneous
  Country: US (occurrence: None)
  Receive Date: 20010817
  Receipt Date: 20130116
  Transmission Date: 20140127
  Serious: Yes (Hospitalization)
  Sender: FDA-Public Use
  Company Number: 02100-USA-01-0017

PATIENT
  Sex: Female

DRUGS (1)
  1. PLETAL (CILOSTAZOL) [Suspect]
     Route: 048
     Dates: start: 200101, end: 200101

REACTIONS (5)
  - Pain [None]
  - Dyspnoea [None]
  - Oedema peripheral [None]
  - Myocardial infarction [None]
  - Musculoskeletal pain [None]
